FAERS Safety Report 21231638 (Version 1)
Quarter: 2022Q3

REPORT INFORMATION
  Report Type: Spontaneous
  Country: US (occurrence: US)
  Receive Date: 20220819
  Receipt Date: 20220819
  Transmission Date: 20221027
  Serious: No
  Sender: FDA-Public Use
  Company Number: US-ALLERGAN-2211607US

PATIENT
  Age: 81 Year
  Sex: Female
  Weight: 102.95 kg

DRUGS (3)
  1. LASTACAFT [Suspect]
     Active Substance: ALCAFTADINE
     Indication: Eye irritation
     Dosage: 2 GTT, QHS
     Route: 047
     Dates: start: 20220402
  2. LASTACAFT [Suspect]
     Active Substance: ALCAFTADINE
     Indication: Eye inflammation
  3. LASTACAFT [Suspect]
     Active Substance: ALCAFTADINE
     Indication: Eyelid thickening

REACTIONS (6)
  - Hallucination, visual [Recovered/Resolved]
  - Insomnia [Unknown]
  - Product use in unapproved indication [Unknown]
  - Condition aggravated [Not Recovered/Not Resolved]
  - Eye irritation [Not Recovered/Not Resolved]
  - Vision blurred [Not Recovered/Not Resolved]

NARRATIVE: CASE EVENT DATE: 20220402
